FAERS Safety Report 18068028 (Version 1)
Quarter: 2020Q3

REPORT INFORMATION
  Report Type: Report from Study
  Country: AU (occurrence: AU)
  Receive Date: 20200724
  Receipt Date: 20200724
  Transmission Date: 20201103
  Serious: Yes (Other)
  Sender: FDA-Public Use
  Company Number: NVSC2020AU207327

PATIENT
  Age: 69 Year
  Sex: Male

DRUGS (6)
  1. EZETIMIBE. [Suspect]
     Active Substance: EZETIMIBE
     Dosage: UNK
     Route: 065
     Dates: start: 201801
  2. EZETIMIBE. [Suspect]
     Active Substance: EZETIMIBE
     Indication: LOW DENSITY LIPOPROTEIN
     Dosage: UNK
     Route: 065
     Dates: start: 201701
  3. EZETIMIBE. [Suspect]
     Active Substance: EZETIMIBE
     Dosage: UNK
     Route: 065
     Dates: start: 201705
  4. EZETIMIBE. [Suspect]
     Active Substance: EZETIMIBE
     Dosage: UNK
     Route: 065
     Dates: start: 201902
  5. EZETIMIBE. [Suspect]
     Active Substance: EZETIMIBE
     Dosage: UNK
     Route: 065
     Dates: start: 202007
  6. EZETIMIBE. [Suspect]
     Active Substance: EZETIMIBE
     Dosage: UNK
     Route: 065
     Dates: start: 202002

REACTIONS (8)
  - Low density lipoprotein increased [Unknown]
  - Hypertension [Unknown]
  - Gout [Unknown]
  - Cardiac failure [Unknown]
  - Nephropathy [Unknown]
  - Stress [Unknown]
  - Diabetes mellitus [Unknown]
  - Drug ineffective [Unknown]
